FAERS Safety Report 6929445-2 (Version None)
Quarter: 2010Q3

REPORT INFORMATION
  Report Type: 
  Country: None (occurrence: None)
  Receive Date: 20100818
  Receipt Date: 20100811
  Transmission Date: 20110219
  Serious: No
  Sender: FDA-Public Use
  Company Number: US-BIOGENIDEC-2010BI020851

PATIENT
  Age: 43 Year
  Sex: Female

DRUGS (1)
  1. TYSABRI [Suspect]
     Indication: MULTIPLE SCLEROSIS
     Route: 042
     Dates: start: 20091116

REACTIONS (7)
  - DRY SKIN [None]
  - FATIGUE [None]
  - HEADACHE [None]
  - INCISION SITE PAIN [None]
  - MELANOCYTIC NAEVUS [None]
  - PAIN [None]
  - SLUGGISHNESS [None]
